FAERS Safety Report 8138096 (Version 2)
Quarter: 2012Q4

REPORT INFORMATION
  Report Type: Report from Study
  Country: US (occurrence: US)
  Receive Date: 20110915
  Receipt Date: 20120925
  Transmission Date: 20130627
  Serious: Yes (Hospitalization)
  Sender: FDA-Public Use
  Company Number: US-AMGEN-USACT2011031634

PATIENT
  Age: 54 Year
  Sex: Female

DRUGS (16)
  1. PEGFILGRASTIM [Suspect]
     Indication: CHEMOTHERAPY
     Dosage: 6 mg, UNK
     Route: 058
     Dates: start: 20110520
  2. VITAMIN B12 [Concomitant]
     Dosage: 200 mg, UNK
     Route: 048
  3. CELEBREX [Concomitant]
     Indication: ABDOMINAL PAIN
     Dosage: 200 mg, prn
     Route: 048
  4. HYDROCODONE [Concomitant]
     Indication: ABDOMINAL PAIN
     Dosage: 5 mg, prn
     Route: 048
  5. PHENERGAN [Concomitant]
     Indication: NAUSEA
     Dosage: 25 mg, prn
  6. ZOFRAN [Concomitant]
     Indication: NAUSEA
     Dosage: 8 mg, prn
     Route: 048
  7. COMPAZINE [Concomitant]
     Indication: NAUSEA
     Dosage: 10 mg, prn
     Route: 048
  8. MS CONTIN [Concomitant]
     Indication: ABDOMINAL PAIN
     Dosage: 15 mg, prn
     Route: 048
  9. CALCIUM GLUCONATE [Concomitant]
     Indication: PROPHYLAXIS
     Dosage: 1 g, prn
     Route: 042
  10. MAGNESIUM SULFATE [Concomitant]
     Indication: PROPHYLAXIS
     Dosage: 1 g, prn
     Route: 042
  11. ALOXI [Concomitant]
     Indication: PROPHYLAXIS
     Dosage: 0.25 mg, prn
     Route: 042
  12. DECADRON [Concomitant]
     Indication: PROPHYLAXIS
     Dosage: 12 mg, prn
     Route: 042
  13. FIBER [Concomitant]
     Indication: CONSTIPATION
     Dosage: UNK
     Route: 048
  14. MILK OF MAGNESIA [Concomitant]
     Indication: CONSTIPATION
     Dosage: UNK UNK, prn
     Route: 048
  15. SENOKOT [Concomitant]
     Indication: CONSTIPATION
     Dosage: UNK UNK, prn
     Route: 048
  16. GAS X [Concomitant]
     Indication: ABDOMINAL DISTENSION
     Dosage: UNK UNK, prn
     Route: 048

REACTIONS (1)
  - Large intestine perforation [Recovered/Resolved]
